FAERS Safety Report 22266185 (Version 1)
Quarter: 2023Q2

REPORT INFORMATION
  Report Type: Spontaneous
  Country: US (occurrence: US)
  Receive Date: 20230428
  Receipt Date: 20230428
  Transmission Date: 20230722
  Serious: No
  Sender: FDA-Public Use
  Company Number: US-MYOVANT SCIENCES GMBH-2023MYSCI0200411

PATIENT
  Sex: Male

DRUGS (11)
  1. ORGOVYX [Suspect]
     Active Substance: RELUGOLIX
     Indication: Prostate cancer
     Dosage: 360 MILLIGRAM, ONE TIME DOSE
     Route: 048
     Dates: start: 20230127, end: 20230127
  2. ORGOVYX [Suspect]
     Active Substance: RELUGOLIX
     Dosage: 120 MILLIGRAM, QD
     Route: 048
     Dates: start: 20230128
  3. AMLODIPINE [Concomitant]
     Active Substance: AMLODIPINE BESYLATE
     Indication: Blood pressure abnormal
     Dosage: 1 DOSAGE FORM, QD
     Route: 048
     Dates: start: 2022
  4. APALUTAMIDE [Concomitant]
     Active Substance: APALUTAMIDE
     Indication: Prostate cancer
     Dosage: UNK
     Route: 065
  5. ORLISTAT [Concomitant]
     Active Substance: ORLISTAT
     Indication: Prostate cancer
     Dosage: 4 DOSAGE FORM
     Route: 065
     Dates: start: 20230127
  6. B12                                /00056201/ [Concomitant]
     Indication: Immune system disorder
     Dosage: 1 DOSAGE FORM, QD
     Route: 048
     Dates: start: 202302
  7. B12                                /00056201/ [Concomitant]
     Indication: Supplementation therapy
  8. VITAMIN D NOS [Concomitant]
     Active Substance: VITAMIN D NOS
     Indication: Immune system disorder
     Dosage: 1 DOSAGE FORM
     Route: 048
     Dates: start: 202302
  9. VITAMIN D NOS [Concomitant]
     Active Substance: VITAMIN D NOS
     Indication: Supplementation therapy
  10. VITAMIN C [Concomitant]
     Active Substance: ASCORBIC ACID
     Indication: Immune system disorder
     Dosage: 1 DOSAGE FORM, QD
     Route: 048
     Dates: start: 202302
  11. VITAMIN C [Concomitant]
     Active Substance: ASCORBIC ACID
     Indication: Supplementation therapy

REACTIONS (3)
  - Blood pressure increased [Unknown]
  - Sleep disorder [Unknown]
  - Incorrect dose administered [Unknown]
